FAERS Safety Report 9768991 (Version 2)
Quarter: 2013Q4

REPORT INFORMATION
  Report Type: Spontaneous
  Country: GB (occurrence: None)
  Receive Date: 20131216
  Receipt Date: 20131217
  Transmission Date: 20140711
  Serious: Yes (Other)
  Sender: FDA-Public Use
  Company Number: COL_14828_2013

PATIENT
  Sex: Male

DRUGS (1)
  1. DURAPHAT [Suspect]
     Indication: PRODUCT USED FOR UNKNOWN INDICATION
     Dosage: 1 APPLICATION
     Route: 048
     Dates: start: 20130108, end: 20130108

REACTIONS (6)
  - Gingival pain [None]
  - Oral mucosal blistering [None]
  - Stress [None]
  - Swelling face [None]
  - Eye swelling [None]
  - Oral pain [None]
